FAERS Safety Report 10288299 (Version 1)
Quarter: 2014Q3

REPORT INFORMATION
  Report Type: Spontaneous
  Country: ES (occurrence: ES)
  Receive Date: 20140709
  Receipt Date: 20140709
  Transmission Date: 20150326
  Serious: Yes (Other)
  Sender: FDA-Public Use
  Company Number: ES-WATSON-2014-14607

PATIENT
  Age: 67 Year
  Sex: Male

DRUGS (1)
  1. PREDNISONE (UNKNOWN) [Suspect]
     Active Substance: PREDNISONE
     Indication: ANTISYNTHETASE SYNDROME
     Dosage: 7.5 MG, DAILY (DECREASED FROM THE INITAL DOSE OF 30 MG/DAY)
     Route: 065

REACTIONS (1)
  - Kaposi^s sarcoma [Recovering/Resolving]
